FAERS Safety Report 5793082-6 (Version None)
Quarter: 2008Q2

REPORT INFORMATION
  Report Type: 
  Country: None (occurrence: None)
  Receive Date: 20080627
  Receipt Date: 20080620
  Transmission Date: 20081010
  Serious: Yes (Other)
  Sender: FDA-Public Use
  Company Number: US-JNJFOC-20080605533

PATIENT
  Age: 21 Year
  Sex: Female
  Weight: 63.9 kg

DRUGS (6)
  1. PREZISTA [Suspect]
     Indication: HIV INFECTION
     Route: 048
  2. MARAVIROC [Suspect]
     Indication: HIV INFECTION
     Route: 048
  3. TENOFOVIR DISOPROXIL FUMARATE [Suspect]
     Indication: HIV INFECTION
  4. RALTEGRAVIR [Suspect]
     Indication: HIV INFECTION
  5. TRIZIVIR [Suspect]
     Indication: HIV INFECTION
  6. NORVIR [Suspect]
     Indication: HIV INFECTION

REACTIONS (1)
  - LIPODYSTROPHY ACQUIRED [None]
